FAERS Safety Report 8911449 (Version 2)
Quarter: 2012Q4

REPORT INFORMATION
  Report Type: 
  Country: SE (occurrence: SE)
  Receive Date: 20121116
  Receipt Date: 20121220
  Transmission Date: 20130627
  Serious: Yes (Other)
  Sender: FDA-Public Use
  Company Number: SE-MILLENNIUM PHARMACEUTICALS, INC.-2012-07878

PATIENT

DRUGS (16)
  1. VELCADE [Suspect]
     Indication: MULTIPLE MYELOMA
     Dosage: UNK
     Route: 065
     Dates: start: 20110207, end: 201105
  2. CYCLOPHOSPHAMIDE [Concomitant]
     Indication: MULTIPLE MYELOMA
  3. VINCRISTINE [Concomitant]
     Indication: MULTIPLE MYELOMA
  4. DEXAMETHASONE [Concomitant]
     Indication: MULTIPLE MYELOMA
  5. OXYNORM [Concomitant]
  6. OXYCONTIN [Concomitant]
  7. SIMVASTATIN ARROW [Concomitant]
  8. GABAPENTIN ACTAVIS [Concomitant]
  9. OMEPRAZOL ACTAVIS [Concomitant]
  10. DEXAMETHASONE                      /00016002/ [Concomitant]
  11. ATARAX                             /00058401/ [Concomitant]
  12. DOXORUBICIN [Concomitant]
  13. LERGIGAN                           /00033002/ [Concomitant]
  14. DELTISON [Concomitant]
  15. OXASCAND [Concomitant]
  16. FORLAX [Concomitant]

REACTIONS (2)
  - Papilloedema [Not Recovered/Not Resolved]
  - Optic ischaemic neuropathy [Unknown]
